FAERS Safety Report 23314345 (Version 1)
Quarter: 2023Q4

REPORT INFORMATION
  Report Type: Spontaneous
  Country: CA (occurrence: CA)
  Receive Date: 20231219
  Receipt Date: 20231219
  Transmission Date: 20240110
  Serious: Yes (Other)
  Sender: FDA-Public Use
  Company Number: CA-OTSUKA-2023_032512

PATIENT
  Age: 3 Decade
  Sex: Male

DRUGS (2)
  1. ARIPIPRAZOLE [Suspect]
     Active Substance: ARIPIPRAZOLE
     Indication: Bipolar disorder
     Dosage: UNK
     Route: 048
  2. QUETIAPINE [Suspect]
     Active Substance: QUETIAPINE
     Indication: Bipolar disorder
     Dosage: 25-100 MG, QD (BED TIME)
     Route: 048

REACTIONS (5)
  - Substance use disorder [Recovering/Resolving]
  - Apathy [Unknown]
  - Libido decreased [Unknown]
  - Depressed mood [Unknown]
  - Sedation [Unknown]
